FAERS Safety Report 13507812 (Version 2)
Quarter: 2017Q2

REPORT INFORMATION
  Report Type: Spontaneous
  Country: US (occurrence: US)
  Receive Date: 20170503
  Receipt Date: 20170522
  Transmission Date: 20170830
  Serious: Yes (Other)
  Sender: FDA-Public Use
  Company Number: US-PFIZER INC-2017186074

PATIENT
  Age: 69 Year
  Sex: Female

DRUGS (3)
  1. LOSARTAN. [Concomitant]
     Active Substance: LOSARTAN
     Indication: HYPERTENSION
     Dosage: 1 DF, DAILY
     Dates: start: 2005
  2. AZITHROMYCIN ANHYDROUS. [Suspect]
     Active Substance: AZITHROMYCIN ANHYDROUS
     Indication: UPPER RESPIRATORY TRACT INFECTION
     Dosage: 500 MG (DAY 1)
     Route: 048
     Dates: start: 201703, end: 201703
  3. AZITHROMYCIN ANHYDROUS. [Suspect]
     Active Substance: AZITHROMYCIN ANHYDROUS
     Dosage: 250 MG, 1X/DAY
     Route: 048
     Dates: start: 201703

REACTIONS (2)
  - Anosmia [Not Recovered/Not Resolved]
  - Ageusia [Not Recovered/Not Resolved]

NARRATIVE: CASE EVENT DATE: 2017
